FAERS Safety Report 5818389-5 (Version None)
Quarter: 2008Q3

REPORT INFORMATION
  Report Type: 
  Country: None (occurrence: None)
  Receive Date: 20080716
  Receipt Date: 20080709
  Transmission Date: 20090109
  Serious: Yes (Other)
  Sender: FDA-Public Use
  Company Number: 200608AGG00468

PATIENT
  Age: 72 Year
  Sex: Male

DRUGS (4)
  1. TIROFIBAN HYDROCHLORIDE (TIROFIBAN HCL) (0.4 MCG/KG, 0.1 MCG/KG) [Suspect]
     Dosage: 0.4 UG/KG/MIN FOR 30 MINS INTRAVENOUS BOLUS; 0.1 UG/KG/MIN FOR 2 DAYS 0 HOURS INTRAVENOUS DRIP
     Route: 041
     Dates: start: 20060718, end: 20060718
  2. TIROFIBAN HYDROCHLORIDE (TIROFIBAN HCL) (0.4 MCG/KG, 0.1 MCG/KG) [Suspect]
     Dosage: 0.4 UG/KG/MIN FOR 30 MINS INTRAVENOUS BOLUS; 0.1 UG/KG/MIN FOR 2 DAYS 0 HOURS INTRAVENOUS DRIP
     Route: 041
     Dates: start: 20060718, end: 20060720
  3. ENOXAPARIN SODIUM [Suspect]
     Dosage: 16 IU QD SUBCUTANEOUS
     Route: 058
     Dates: start: 20060718, end: 20060724
  4. CLOPIDOGREL BISULFATE [Suspect]
     Dosage: 75 MG QD ORAL
     Route: 048
     Dates: start: 20060719, end: 20060726

REACTIONS (3)
  - HAEMOLYSIS [None]
  - HEPATIC ENZYME ABNORMAL [None]
  - THROMBOCYTOPENIA [None]
